FAERS Safety Report 11001344 (Version 2)
Quarter: 2016Q2

REPORT INFORMATION
  Report Type: Spontaneous
  Country: US (occurrence: US)
  Receive Date: 20150408
  Receipt Date: 20160412
  Transmission Date: 20160815
  Serious: No
  Sender: FDA-Public Use
  Company Number: US-SA-2015SA026874

PATIENT

DRUGS (2)
  1. ALLEGRA [Suspect]
     Active Substance: FEXOFENADINE HYDROCHLORIDE
     Route: 048
  2. OTRIVIN [Suspect]
     Active Substance: XYLOMETAZOLINE
     Route: 065

REACTIONS (2)
  - Dyspnoea [Unknown]
  - Drug ineffective [Unknown]
